FAERS Safety Report 7303558-8 (Version None)
Quarter: 2011Q1

REPORT INFORMATION
  Report Type: 
  Country: None (occurrence: None)
  Receive Date: 20110221
  Receipt Date: 20110217
  Transmission Date: 20110831
  Serious: Yes (Death, Hospitalization, Disabling)
  Sender: FDA-Public Use
  Company Number: PHHY2011ES12658

PATIENT
  Age: 74 Year
  Sex: Male

DRUGS (5)
  1. STALEVO 100 [Concomitant]
     Dosage: 750 MG, UNK
     Route: 048
     Dates: end: 20091127
  2. EXELON [Suspect]
     Dosage: 12 ML, UNK
     Route: 048
  3. SEROQUEL [Interacting]
     Indication: DEMENTIA
     Dosage: 100 MG DAILY
     Route: 048
     Dates: start: 20091102, end: 20091127
  4. PAROXETINE HCL [Interacting]
     Dosage: UNK UKN, UNK
     Dates: end: 20091125
  5. AZILECT [Concomitant]
     Dosage: 1 MG DAILY
     Route: 048
     Dates: end: 20091127

REACTIONS (8)
  - DRUG INTERACTION [None]
  - SOMNOLENCE [None]
  - MUSCLE RIGIDITY [None]
  - PARKINSON'S DISEASE [None]
  - CONFUSIONAL STATE [None]
  - EYE MOVEMENT DISORDER [None]
  - SLOW RESPONSE TO STIMULI [None]
  - BRADYKINESIA [None]
